FAERS Safety Report 16416219 (Version 4)
Quarter: 2019Q3

REPORT INFORMATION
  Report Type: Report from Study
  Country: US (occurrence: US)
  Receive Date: 20190611
  Receipt Date: 20190703
  Transmission Date: 20191004
  Serious: Yes (Hospitalization, Other)
  Sender: FDA-Public Use
  Company Number: US-ALEXION PHARMACEUTICALS INC.-A201908763

PATIENT
  Age: 55 Year
  Sex: Female

DRUGS (1)
  1. SOLIRIS [Suspect]
     Active Substance: ECULIZUMAB
     Indication: PAROXYSMAL NOCTURNAL HAEMOGLOBINURIA
     Dosage: 1200 MG, Q2W
     Route: 042
     Dates: start: 20130621

REACTIONS (10)
  - Full blood count decreased [Unknown]
  - Cardiac disorder [Not Recovered/Not Resolved]
  - Infusion site swelling [Unknown]
  - Chills [Unknown]
  - Intervertebral disc disorder [Not Recovered/Not Resolved]
  - Body temperature increased [Unknown]
  - Headache [Unknown]
  - Sepsis [Not Recovered/Not Resolved]
  - Endocarditis [Not Recovered/Not Resolved]
  - Asthenia [Unknown]

NARRATIVE: CASE EVENT DATE: 201906
